FAERS Safety Report 14712337 (Version 1)
Quarter: 2018Q2

REPORT INFORMATION
  Report Type: Spontaneous
  Country: US (occurrence: US)
  Receive Date: 20180404
  Receipt Date: 20180404
  Transmission Date: 20180711
  Serious: No
  Sender: FDA-Public Use
  Company Number: US-BIOGEN-2018BI00530928

PATIENT
  Sex: Female

DRUGS (1)
  1. TYSABRI [Suspect]
     Active Substance: NATALIZUMAB
     Indication: MULTIPLE SCLEROSIS
     Route: 042
     Dates: start: 20141001, end: 20160923

REACTIONS (4)
  - Trigeminal neuralgia [Unknown]
  - Drug dose omission [Unknown]
  - Muscle spasms [Unknown]
  - Sensory disturbance [Unknown]
